FAERS Safety Report 25710158 (Version 1)
Quarter: 2025Q3

REPORT INFORMATION
  Report Type: Spontaneous
  Country: IN (occurrence: IN)
  Receive Date: 20250821
  Receipt Date: 20250821
  Transmission Date: 20251020
  Serious: Yes (Death, Hospitalization, Other)
  Sender: MYLAN
  Company Number: IN-MYLANLABS-2025M1069501

PATIENT
  Age: 36 Year
  Sex: Male

DRUGS (5)
  1. IMATINIB [Suspect]
     Active Substance: IMATINIB
     Indication: Chronic myeloid leukaemia
  2. DASATINIB [Suspect]
     Active Substance: DASATINIB
     Indication: Chronic myeloid leukaemia
     Dosage: 100 MILLIGRAM, QD (INITIAL DOSE)
  3. DASATINIB [Suspect]
     Active Substance: DASATINIB
     Dosage: 50 MILLIGRAM, QD (DECREASED TO 50 MG)
  4. DASATINIB [Suspect]
     Active Substance: DASATINIB
     Dosage: 100 MILLIGRAM, QD (AGAIN INCREASED TO 100MG)
  5. MANNITOL [Suspect]
     Active Substance: MANNITOL
     Indication: Brain oedema

REACTIONS (2)
  - Drug ineffective [Fatal]
  - Drug resistance [Unknown]
